FAERS Safety Report 5857681-5 (Version None)
Quarter: 2008Q3

REPORT INFORMATION
  Report Type: 
  Country: None (occurrence: None)
  Receive Date: 20080826
  Receipt Date: 20080818
  Transmission Date: 20090109
  Serious: Yes (Hospitalization)
  Sender: FDA-Public Use
  Company Number: US-BAYER-200813437BCC

PATIENT
  Age: 86 Year
  Sex: Male
  Weight: 78 kg

DRUGS (4)
  1. ASPIRIN [Suspect]
     Indication: ISCHAEMIC HEART DISEASE PROPHYLAXIS
     Dosage: TOTAL DAILY DOSE: 81 MG  UNIT DOSE: 81 MG
     Route: 048
     Dates: start: 20080801
  2. FELODIPINE [Concomitant]
  3. TORSEMIDE [Concomitant]
  4. DIURETIC NOS [Concomitant]

REACTIONS (1)
  - HAEMOGLOBIN DECREASED [None]
